FAERS Safety Report 20569897 (Version 5)
Quarter: 2022Q4

REPORT INFORMATION
  Report Type: Spontaneous
  Country: CA (occurrence: CA)
  Receive Date: 20220309
  Receipt Date: 20221123
  Transmission Date: 20230112
  Serious: Yes (Other)
  Sender: FDA-Public Use
  Company Number: CA-CELLTRION INC.-2019CA027857

PATIENT

DRUGS (30)
  1. INFLECTRA [Suspect]
     Active Substance: INFLIXIMAB-DYYB
     Indication: Crohn^s disease
     Dosage: 740 MG, EVERY 6 WEEKS
     Route: 042
     Dates: start: 20200109, end: 20200526
  2. INFLECTRA [Suspect]
     Active Substance: INFLIXIMAB-DYYB
     Dosage: 740 MG, EVERY 6 WEEKS
     Route: 042
     Dates: start: 20200403
  3. INFLECTRA [Suspect]
     Active Substance: INFLIXIMAB-DYYB
     Dosage: 740 MG, EVERY 6 WEEKS
     Route: 042
     Dates: start: 20200526, end: 20200526
  4. INFLECTRA [Suspect]
     Active Substance: INFLIXIMAB-DYYB
     Dosage: 645 MG, EVERY 6 WEEKS
     Route: 042
     Dates: start: 20200626
  5. INFLECTRA [Suspect]
     Active Substance: INFLIXIMAB-DYYB
     Dosage: 645 MG, EVERY 6 WEEKS
     Route: 042
     Dates: start: 20200626
  6. INFLECTRA [Suspect]
     Active Substance: INFLIXIMAB-DYYB
     Dosage: 645 MG, EVERY 6 WEEKS
     Route: 042
     Dates: start: 20200626
  7. INFLECTRA [Suspect]
     Active Substance: INFLIXIMAB-DYYB
     Dosage: 645 MG, EVERY 6 WEEKS
     Route: 042
     Dates: start: 20200626, end: 20211202
  8. INFLECTRA [Suspect]
     Active Substance: INFLIXIMAB-DYYB
     Dosage: 645 MG, EVERY 6 WEEKS
     Route: 042
     Dates: start: 20200731
  9. INFLECTRA [Suspect]
     Active Substance: INFLIXIMAB-DYYB
     Dosage: 645 MG, EVERY 6 WEEKS
     Route: 042
     Dates: start: 20200917
  10. INFLECTRA [Suspect]
     Active Substance: INFLIXIMAB-DYYB
     Dosage: 645 MG, EVERY 6 WEEKS
     Route: 042
     Dates: start: 20200917
  11. INFLECTRA [Suspect]
     Active Substance: INFLIXIMAB-DYYB
     Dosage: 645 MG, EVERY 6 WEEKS
     Route: 042
     Dates: start: 20201021
  12. INFLECTRA [Suspect]
     Active Substance: INFLIXIMAB-DYYB
     Dosage: 645 MG, EVERY 6 WEEKS
     Route: 042
     Dates: start: 20201021
  13. INFLECTRA [Suspect]
     Active Substance: INFLIXIMAB-DYYB
     Dosage: 645 MG, EVERY 6 WEEKS
     Route: 042
     Dates: start: 20210312, end: 20210312
  14. INFLECTRA [Suspect]
     Active Substance: INFLIXIMAB-DYYB
     Dosage: 645 MG, EVERY 6 WEEKS
     Route: 042
     Dates: start: 20210312
  15. INFLECTRA [Suspect]
     Active Substance: INFLIXIMAB-DYYB
     Dosage: 645 MG, EVERY 6 WEEKS
     Route: 042
     Dates: start: 20210426
  16. INFLECTRA [Suspect]
     Active Substance: INFLIXIMAB-DYYB
     Dosage: 645 MG, EVERY 6 WEEKS
     Route: 042
     Dates: start: 20210426
  17. INFLECTRA [Suspect]
     Active Substance: INFLIXIMAB-DYYB
     Dosage: 645 MG, EVERY 6 WEEKS
     Route: 042
     Dates: start: 20210607
  18. INFLECTRA [Suspect]
     Active Substance: INFLIXIMAB-DYYB
     Dosage: 645 MG, EVERY 6 WEEKS
     Route: 042
     Dates: start: 20210719
  19. INFLECTRA [Suspect]
     Active Substance: INFLIXIMAB-DYYB
     Dosage: 645 MG, EVERY 6 WEEKS
     Route: 042
     Dates: start: 20210830
  20. INFLECTRA [Suspect]
     Active Substance: INFLIXIMAB-DYYB
     Dosage: 645 MG, EVERY 6 WEEKS
     Route: 042
     Dates: start: 20211021
  21. INFLECTRA [Suspect]
     Active Substance: INFLIXIMAB-DYYB
     Dosage: 645 MG, EVERY 6 WEEKS
     Route: 042
     Dates: start: 20211202
  22. INFLECTRA [Suspect]
     Active Substance: INFLIXIMAB-DYYB
     Dosage: 750 MG EVERY 4 WEEKS
     Route: 042
     Dates: start: 20220117
  23. INFLECTRA [Suspect]
     Active Substance: INFLIXIMAB-DYYB
     Dosage: 750 MG EVERY 4 WEEKS
     Route: 042
     Dates: start: 20220117, end: 20220117
  24. INFLECTRA [Suspect]
     Active Substance: INFLIXIMAB-DYYB
     Dosage: 650 MG (780MG (650 MG, EVERY 6 WEEKS)
     Route: 042
     Dates: start: 20211202
  25. INFLECTRA [Suspect]
     Active Substance: INFLIXIMAB-DYYB
     Dosage: 650 MG, 780MG (650 MG, EVERY 6 WEEKS)
     Route: 042
     Dates: start: 20220228
  26. INFLECTRA [Suspect]
     Active Substance: INFLIXIMAB-DYYB
     Dosage: 800MG (650 MG, EVERY 6 WEEKS)
     Route: 042
     Dates: start: 20220412
  27. INFLECTRA [Suspect]
     Active Substance: INFLIXIMAB-DYYB
     Dosage: 650 MG, EVERY 6 WEEK
     Route: 042
     Dates: start: 20220817
  28. INFLECTRA [Suspect]
     Active Substance: INFLIXIMAB-DYYB
     Dosage: 650 MG, EVERY 6 WEEK
     Route: 042
     Dates: start: 20220926
  29. INFLECTRA [Suspect]
     Active Substance: INFLIXIMAB-DYYB
     Dosage: 650 MG, EVERY 6 WEEK
     Route: 042
     Dates: start: 20221114
  30. IMURAN [Concomitant]
     Active Substance: AZATHIOPRINE
     Dosage: 1 DF DOSAGE NOT AVAILABLE
     Route: 065

REACTIONS (12)
  - Weight increased [Recovered/Resolved]
  - Off label use [Unknown]
  - Off label use [Unknown]
  - Off label use [Unknown]
  - Intentional product use issue [Unknown]
  - Incorrect dose administered [Unknown]
  - Inappropriate schedule of product administration [Unknown]
  - Weight decreased [Unknown]
  - Blood pressure increased [Unknown]
  - Arthralgia [Unknown]
  - Weight increased [Unknown]
  - Condition aggravated [Recovered/Resolved]

NARRATIVE: CASE EVENT DATE: 20200526
